FAERS Safety Report 4861587-8 (Version None)
Quarter: 2005Q4

REPORT INFORMATION
  Report Type: 
  Country: None (occurrence: None)
  Receive Date: 20051220
  Receipt Date: 20051209
  Transmission Date: 20060501
  Serious: Yes (Other)
  Sender: FDA-Public Use
  Company Number: CA-BRISTOL-MYERS SQUIBB COMPANY-13218805

PATIENT
  Age: 75 Year
  Sex: Male

DRUGS (10)
  1. TEQUIN [Suspect]
     Route: 048
  2. APO-PREDNISONE [Suspect]
     Route: 048
  3. ADALAT [Concomitant]
  4. ASAPHEN [Concomitant]
  5. GLYBURIDE [Concomitant]
  6. HYDROCORTISONE [Concomitant]
  7. METFORMINE [Concomitant]
  8. SYMBICORT [Concomitant]
     Route: 055
  9. TRIAZOLAM [Concomitant]
  10. VASOTEC [Concomitant]

REACTIONS (2)
  - HYPERGLYCAEMIA [None]
  - SOMNOLENCE [None]
